FAERS Safety Report 19924637 (Version 3)
Quarter: 2021Q4

REPORT INFORMATION
  Report Type: Report from Study
  Country: CA (occurrence: CA)
  Receive Date: 20211006
  Receipt Date: 20211101
  Transmission Date: 20220303
  Serious: Yes (Other)
  Sender: FDA-Public Use
  Company Number: CA-AMGEN-CANSL2021133474

PATIENT
  Age: 58 Year
  Sex: Male
  Weight: 85 kg

DRUGS (9)
  1. MVASI [Suspect]
     Active Substance: BEVACIZUMAB-AWWB
     Indication: Glioblastoma multiforme
     Dosage: 850 MILLIGRAM, Q2WK
     Route: 042
  2. MVASI [Suspect]
     Active Substance: BEVACIZUMAB-AWWB
     Dosage: 850 MILLIGRAM, Q2WK
     Route: 042
     Dates: start: 20210924
  3. MVASI [Suspect]
     Active Substance: BEVACIZUMAB-AWWB
     Dosage: 830 MILLIGRAM, Q2WK
     Route: 042
     Dates: start: 20210924
  4. MVASI [Suspect]
     Active Substance: BEVACIZUMAB-AWWB
     Dosage: 830 MILLIGRAM, Q2WK
     Route: 042
     Dates: start: 20211008
  5. MVASI [Suspect]
     Active Substance: BEVACIZUMAB-AWWB
     Dosage: 830 MILLIGRAM, Q2WK
     Route: 042
     Dates: start: 20211022
  6. LOMUSTINE [Suspect]
     Active Substance: LOMUSTINE
     Indication: Product used for unknown indication
     Dosage: UNK
     Route: 065
  7. PREGABALIN [Concomitant]
     Active Substance: PREGABALIN
     Dosage: 50 MILLIGRAM
  8. LACTULOSE [Concomitant]
     Active Substance: LACTULOSE
  9. SENOKOT [Concomitant]
     Active Substance: SENNOSIDES

REACTIONS (34)
  - Thrombocytopenia [Unknown]
  - Immunodeficiency [Unknown]
  - Bradycardia [Unknown]
  - Hemiparesis [Unknown]
  - Loss of consciousness [Unknown]
  - Faecal volume increased [Unknown]
  - Rash [Unknown]
  - Glossodynia [Unknown]
  - Taste disorder [Unknown]
  - Palmar-plantar erythrodysaesthesia syndrome [Unknown]
  - Somnolence [Recovering/Resolving]
  - Dyspnoea [Unknown]
  - Pain [Not Recovered/Not Resolved]
  - Nausea [Not Recovered/Not Resolved]
  - Constipation [Not Recovered/Not Resolved]
  - Vomiting [Unknown]
  - Anxiety [Recovering/Resolving]
  - Sleep disorder [Not Recovered/Not Resolved]
  - Fatigue [Recovering/Resolving]
  - Headache [Recovering/Resolving]
  - Dyspepsia [Recovered/Resolved]
  - Dry mouth [Unknown]
  - Cognitive disorder [Unknown]
  - Depression [Not Recovered/Not Resolved]
  - Appetite disorder [Unknown]
  - Malaise [Unknown]
  - Anger [Unknown]
  - Frustration tolerance decreased [Unknown]
  - Peroneal nerve palsy [Unknown]
  - Bone pain [Unknown]
  - Dysaesthesia [Unknown]
  - Flatulence [Not Recovered/Not Resolved]
  - Hyperaesthesia [Unknown]
  - Pruritus [Unknown]

NARRATIVE: CASE EVENT DATE: 20211008
